FAERS Safety Report 14260839 (Version 1)
Quarter: 2017Q4

REPORT INFORMATION
  Report Type: Spontaneous
  Country: NZ (occurrence: NZ)
  Receive Date: 20171207
  Receipt Date: 20171207
  Transmission Date: 20180321
  Serious: Yes (Other)
  Sender: FDA-Public Use
  Company Number: NZ-IMPAX LABORATORIES, INC-2017-IPXL-03496

PATIENT
  Age: 56 Year
  Sex: Female

DRUGS (2)
  1. ALENDRONATE SODIUM IR [Suspect]
     Active Substance: ALENDRONATE SODIUM
     Indication: PRODUCT USED FOR UNKNOWN INDICATION
     Dosage: 70 MG, UNK
     Route: 065
     Dates: start: 201508
  2. CHOLECALCIFEROL [Concomitant]
     Active Substance: CHOLECALCIFEROL
     Indication: PRODUCT USED FOR UNKNOWN INDICATION
     Dosage: 140 ?G, UNK
     Route: 065
     Dates: start: 201508

REACTIONS (1)
  - Tubulointerstitial nephritis [Recovered/Resolved with Sequelae]
